FAERS Safety Report 19914167 (Version 1)
Quarter: 2021Q4

REPORT INFORMATION
  Report Type: Spontaneous
  Country: US (occurrence: US)
  Receive Date: 20211005
  Receipt Date: 20211005
  Transmission Date: 20220303
  Serious: No
  Sender: FDA-Public Use
  Company Number: US-ACCORD-217614

PATIENT
  Age: 88 Year
  Sex: Female
  Weight: 79.38 kg

DRUGS (9)
  1. ESCITALOPRAM [Suspect]
     Active Substance: ESCITALOPRAM OXALATE
     Indication: Relaxation therapy
     Dosage: ONCE DAY
     Route: 048
     Dates: start: 20210204
  2. CHILDRENS MOTRIN [Concomitant]
     Active Substance: IBUPROFEN
     Dosage: 100MG/EVERY OTHER DAY
  3. BUMEX [Concomitant]
     Active Substance: BUMETANIDE
     Dosage: 1MG/ DAY
     Route: 048
  4. CARDIZEM [Concomitant]
     Active Substance: DILTIAZEM HYDROCHLORIDE
     Dosage: 360 MG/ONCE DAILY
  5. IRON [Concomitant]
     Active Substance: IRON
     Dosage: 325MG /DAILY
  6. MAGNESIUM HYDROXIDE [Concomitant]
     Active Substance: MAGNESIUM HYDROXIDE
     Dosage: 400MG/5ML DAILY
  7. MECLIZINE [Concomitant]
     Active Substance: MECLIZINE HYDROCHLORIDE
  8. PREVACID [Concomitant]
     Active Substance: LANSOPRAZOLE
     Dosage: 30MG/DELAYED RELEASE
     Route: 048
  9. AMITRIPTYLINE HYDROCHLORIDE\PERPHENAZINE [Concomitant]
     Active Substance: AMITRIPTYLINE HYDROCHLORIDE\PERPHENAZINE
     Dosage: 2MG/10MG/ONCE DAY
     Route: 048

REACTIONS (3)
  - Rash [Recovering/Resolving]
  - Pruritus [Not Recovered/Not Resolved]
  - Off label use [Unknown]

NARRATIVE: CASE EVENT DATE: 20210201
